FAERS Safety Report 24791772 (Version 2)
Quarter: 2025Q1

REPORT INFORMATION
  Report Type: Spontaneous
  Country: GR (occurrence: GR)
  Receive Date: 20241231
  Receipt Date: 20250109
  Transmission Date: 20250408
  Serious: Yes (Other)
  Sender: CELLTRION
  Company Number: GR-CELLTRION INC.-2024GR032942

PATIENT

DRUGS (2)
  1. ADALIMUMAB [Suspect]
     Active Substance: ADALIMUMAB
     Indication: Juvenile spondyloarthritis
     Dosage: 40 MG EVERY TWO WEEKS
  2. PREDNISOLONE [Suspect]
     Active Substance: PREDNISOLONE
     Indication: Juvenile spondyloarthritis

REACTIONS (2)
  - Myocarditis [Recovering/Resolving]
  - Cardiac failure [Recovering/Resolving]
